FAERS Safety Report 19668845 (Version 2)
Quarter: 2021Q3

REPORT INFORMATION
  Report Type: Spontaneous
  Country: US (occurrence: US)
  Receive Date: 20210806
  Receipt Date: 20210908
  Transmission Date: 20211014
  Serious: Yes (Other)
  Sender: FDA-Public Use
  Company Number: US-AMERICAN REGENT INC-2021002037

PATIENT
  Age: 39 Year
  Sex: Female

DRUGS (1)
  1. INJECTAFER [Suspect]
     Active Substance: FERRIC CARBOXYMALTOSE
     Indication: PRODUCT USED FOR UNKNOWN INDICATION
     Dosage: 750 MG/50 ML NORMAL SALINE
     Route: 042
     Dates: start: 20210802, end: 20210802

REACTIONS (2)
  - Dysmenorrhoea [Unknown]
  - Pain [Unknown]

NARRATIVE: CASE EVENT DATE: 20210802
